FAERS Safety Report 14933010 (Version 1)
Quarter: 2018Q2

REPORT INFORMATION
  Report Type: Spontaneous
  Country: US (occurrence: US)
  Receive Date: 20180524
  Receipt Date: 20180524
  Transmission Date: 20180711
  Serious: No
  Sender: FDA-Public Use
  Company Number: US-PFIZER INC-2018212764

PATIENT
  Sex: Female

DRUGS (1)
  1. NEURONTIN [Suspect]
     Active Substance: GABAPENTIN
     Dosage: 1800 MG, DAILY [400 MG THREE TIMES DAILY BY MOUTH AND THEN TAKES A 600 MG TABLET BY MOUTH AT NIGHT]
     Route: 048
     Dates: start: 2016

REACTIONS (2)
  - Weight increased [Unknown]
  - Drug ineffective [Unknown]
